FAERS Safety Report 13093587 (Version 1)
Quarter: 2017Q1

REPORT INFORMATION
  Report Type: Spontaneous
  Country: US (occurrence: US)
  Receive Date: 20170105
  Receipt Date: 20170105
  Transmission Date: 20170428
  Serious: Yes (Hospitalization)
  Sender: FDA-Public Use
  Company Number: None

PATIENT
  Age: 38 Year
  Sex: Male
  Weight: 58.6 kg

DRUGS (8)
  1. PAZOPANIB [Suspect]
     Active Substance: PAZOPANIB
     Indication: SQUAMOUS CELL CARCINOMA OF HEAD AND NECK
     Dosage: 800 MG QD PO/ G-TUBE
     Route: 048
     Dates: start: 20160922, end: 20161222
  2. PROCHLORPERAZINE. [Concomitant]
     Active Substance: PROCHLORPERAZINE
  3. TYLENOL [Concomitant]
     Active Substance: ACETAMINOPHEN
  4. FENTANYL. [Concomitant]
     Active Substance: FENTANYL
  5. SENNA [Concomitant]
     Active Substance: SENNA LEAF\SENNOSIDES\SENNOSIDES A AND B
  6. ONDANSETRON [Concomitant]
     Active Substance: ONDANSETRON
  7. CETUXIMAB. [Suspect]
     Active Substance: CETUXIMAB
     Indication: SQUAMOUS CELL CARCINOMA OF HEAD AND NECK
     Route: 042
     Dates: start: 20160922, end: 20161219
  8. OXYCODONE [Concomitant]
     Active Substance: OXYCODONE

REACTIONS (3)
  - Ureterolithiasis [None]
  - Refusal of treatment by patient [None]
  - Hydronephrosis [None]

NARRATIVE: CASE EVENT DATE: 20161221
